FAERS Safety Report 6509925-4 (Version None)
Quarter: 2009Q4

REPORT INFORMATION
  Report Type: 
  Country: None (occurrence: None)
  Receive Date: 20091222
  Receipt Date: 20091211
  Transmission Date: 20100525
  Serious: Yes (Hospitalization, Other)
  Sender: FDA-Public Use
  Company Number: PHHY2009JP53008

PATIENT
  Age: 46 Year
  Sex: Female

DRUGS (3)
  1. DICLOFENAC SODIUM [Suspect]
     Indication: PYREXIA
  2. LOXONIN [Concomitant]
     Indication: PYREXIA
  3. ACICLOVIR [Concomitant]
     Dosage: UNK

REACTIONS (9)
  - ANTIPHOSPHOLIPID ANTIBODIES POSITIVE [None]
  - ANTIPHOSPHOLIPID SYNDROME [None]
  - HEADACHE [None]
  - INTERLEUKIN LEVEL INCREASED [None]
  - LYMPHOCYTE COUNT DECREASED [None]
  - MENINGITIS ASEPTIC [None]
  - NEUROPSYCHIATRIC LUPUS [None]
  - NEUROSIS [None]
  - SYSTEMIC LUPUS ERYTHEMATOSUS [None]
